FAERS Safety Report 6571980-3 (Version None)
Quarter: 2010Q1

REPORT INFORMATION
  Report Type: 
  Country: None (occurrence: None)
  Receive Date: 20100205
  Receipt Date: 20100125
  Transmission Date: 20100710
  Serious: Yes (Hospitalization)
  Sender: FDA-Public Use
  Company Number: AT-ELI_LILLY_AND_COMPANY-AT201001005286

PATIENT
  Age: 34 Year
  Sex: Male
  Weight: 91.1 kg

DRUGS (18)
  1. ZYPREXA [Suspect]
     Dosage: 15 MG, DAILY (1/D)
     Route: 048
     Dates: start: 20090501, end: 20090605
  2. ZYPREXA [Interacting]
     Dosage: 20 MG, DAILY (1/D)
     Route: 048
     Dates: start: 20090606, end: 20090608
  3. ZYPREXA [Interacting]
     Dosage: 30 MG, DAILY (1/D)
     Route: 048
     Dates: start: 20090609, end: 20090704
  4. ZYPREXA [Interacting]
     Dosage: 20 MG, DAILY (1/D)
     Route: 048
     Dates: start: 20090705, end: 20090708
  5. ZYPREXA [Interacting]
     Dosage: 15 MG, DAILY (1/D)
     Route: 048
     Dates: start: 20090709, end: 20090716
  6. ZYPREXA [Interacting]
     Dosage: 10 MG, UNK
     Route: 048
     Dates: start: 20090717
  7. TRILEPTAL [Interacting]
     Dosage: 1200 MG, UNK
     Dates: start: 20090501, end: 20090609
  8. TRILEPTAL [Interacting]
     Dosage: 1800 MG, UNK
     Dates: start: 20090610, end: 20090614
  9. TRILEPTAL [Interacting]
     Dosage: 2100 MG, UNK
     Dates: start: 20090615, end: 20090701
  10. TRILEPTAL [Interacting]
     Dosage: 1800 MG, UNK
     Dates: start: 20090702, end: 20090702
  11. TRILEPTAL [Interacting]
     Dosage: 1200 MG, UNK
     Dates: start: 20090703, end: 20090704
  12. TRILEPTAL [Interacting]
     Dosage: 600 MG, UNK
     Dates: start: 20090705, end: 20090707
  13. RISPERDAL [Interacting]
     Dosage: 8 MG, UNK
     Dates: start: 20090613, end: 20090713
  14. NOZINAN [Interacting]
     Dosage: 50 MG, UNK
     Dates: start: 20090625, end: 20090707
  15. NOZINAN [Interacting]
     Dosage: 100 MG, UNK
     Dates: start: 20090708
  16. NEXIUM [Interacting]
     Dosage: 20 MG, UNK
     Dates: start: 20090501
  17. TANATRIL [Concomitant]
     Dosage: 5 MG, UNK
     Dates: end: 20090701
  18. TANATRIL [Concomitant]
     Dosage: 10 MG, UNK
     Dates: start: 20090702

REACTIONS (3)
  - DRUG INTERACTION [None]
  - HYPONATRAEMIA [None]
  - OVERDOSE [None]
